FAERS Safety Report 24743176 (Version 5)
Quarter: 2025Q1

REPORT INFORMATION
  Report Type: Spontaneous
  Country: GR (occurrence: GR)
  Receive Date: 20241217
  Receipt Date: 20250305
  Transmission Date: 20250409
  Serious: No
  Sender: PFIZER
  Company Number: GR-PFIZER INC-PV202400159259

PATIENT
  Age: 14 Year
  Sex: Male
  Weight: 55 kg

DRUGS (3)
  1. GENOTROPIN [Suspect]
     Active Substance: SOMATROPIN
     Indication: Growth hormone deficiency
     Dosage: NO DAY OFF
     Route: 058
     Dates: start: 20220606
  2. GENOTROPIN [Suspect]
     Active Substance: SOMATROPIN
     Dates: start: 20241226
  3. ARIMIDEX [Concomitant]
     Active Substance: ANASTROZOLE
     Indication: Bone development abnormal
     Dosage: 1 MG, 1X/DAY

REACTIONS (2)
  - Drug dose omission by device [Unknown]
  - Device issue [Unknown]

NARRATIVE: CASE EVENT DATE: 20241204
